FAERS Safety Report 5669583-8 (Version None)
Quarter: 2008Q1

REPORT INFORMATION
  Report Type: 
  Country: None (occurrence: None)
  Receive Date: 20080317
  Receipt Date: 20080310
  Transmission Date: 20080703
  Serious: Yes (Other)
  Sender: FDA-Public Use
  Company Number: PHEH2006US02521

PATIENT
  Age: 47 Year
  Sex: Female
  Weight: 68.934 kg

DRUGS (13)
  1. AREDIA [Suspect]
     Indication: METASTASES TO BONE
     Dosage: 90MG, MONTHLY
     Route: 042
     Dates: start: 20001009
  2. ZOMETA [Suspect]
     Indication: METASTASES TO BONE
     Dosage: 4MG, MONTHLY
     Route: 042
     Dates: start: 20030428, end: 20060101
  3. TAXOTERE [Concomitant]
     Indication: BREAST CANCER
     Dosage: UNK, Q3 WEEKS
  4. TRASTUZUMAB [Concomitant]
     Indication: BREAST CANCER
  5. ANASTROZOLE [Concomitant]
     Indication: CHEMOTHERAPY
  6. ADRIAMYCIN [Concomitant]
     Indication: BREAST CANCER
  7. CYTOXAN [Concomitant]
     Indication: BREAST CANCER
  8. TAXANES [Concomitant]
     Indication: BREAST CANCER
  9. VINORELBINE [Concomitant]
     Indication: CHEMOTHERAPY
     Dates: start: 20030501
  10. TAMOXIFEN [Concomitant]
     Indication: BREAST CANCER
     Dates: end: 20000401
  11. OXYCONTIN [Concomitant]
     Dosage: 10 MG, Q12H
  12. XELODA [Concomitant]
     Indication: BREAST CANCER
  13. OXYCODONE HCL [Concomitant]
     Dosage: 5 MG, Q4H

REACTIONS (22)
  - ALOPECIA [None]
  - BACK PAIN [None]
  - BONE DISORDER [None]
  - DENTAL CARIES [None]
  - DISEASE PROGRESSION [None]
  - EJECTION FRACTION DECREASED [None]
  - EMOTIONAL DISTRESS [None]
  - ERYTHEMA [None]
  - GAMMA RADIATION THERAPY TO BRAIN [None]
  - HEADACHE [None]
  - INJURY [None]
  - METASTASES TO CENTRAL NERVOUS SYSTEM [None]
  - METASTASIS [None]
  - OEDEMA MOUTH [None]
  - ORAL INFECTION [None]
  - ORAL PAIN [None]
  - OSTEONECROSIS [None]
  - PAIN [None]
  - PAIN IN JAW [None]
  - TOOTH EXTRACTION [None]
  - TOOTHACHE [None]
  - TUMOUR MARKER INCREASED [None]
